FAERS Safety Report 19115183 (Version 1)
Quarter: 2021Q2

REPORT INFORMATION
  Report Type: Spontaneous
  Country: US (occurrence: US)
  Receive Date: 20210408
  Receipt Date: 20210408
  Transmission Date: 20210717
  Serious: No
  Sender: FDA-Public Use
  Company Number: US-JNJFOC-20210356236

PATIENT
  Age: 75 Year
  Sex: Female
  Weight: 54.48 kg

DRUGS (1)
  1. SIMPONI ARIA [Suspect]
     Active Substance: GOLIMUMAB
     Indication: RHEUMATOID ARTHRITIS
     Route: 042
     Dates: start: 202101, end: 202102

REACTIONS (10)
  - Pruritus [Unknown]
  - Gait disturbance [Unknown]
  - Gastritis [Unknown]
  - Feeling hot [Unknown]
  - Vision blurred [Unknown]
  - Urticaria [Unknown]
  - Fatigue [Unknown]
  - Rash macular [Not Recovered/Not Resolved]
  - Ear congestion [Not Recovered/Not Resolved]
  - Swelling [Unknown]

NARRATIVE: CASE EVENT DATE: 202102
